FAERS Safety Report 11116278 (Version 1)
Quarter: 2015Q2

REPORT INFORMATION
  Report Type: Spontaneous
  Country: AU (occurrence: AU)
  Receive Date: 20150515
  Receipt Date: 20150515
  Transmission Date: 20150821
  Serious: Yes (Hospitalization)
  Sender: FDA-Public Use
  Company Number: AU-AMGEN-AUSSP2015038242

PATIENT
  Age: 76 Year
  Sex: Male
  Weight: 51.5 kg

DRUGS (1)
  1. PROLIA [Suspect]
     Active Substance: DENOSUMAB
     Indication: PRODUCT USED FOR UNKNOWN INDICATION
     Dosage: UNK
     Route: 065
     Dates: start: 20141210

REACTIONS (5)
  - Rash generalised [Unknown]
  - Weight decreased [Unknown]
  - Dermatitis allergic [Unknown]
  - Rash erythematous [Unknown]
  - Insomnia [Unknown]

NARRATIVE: CASE EVENT DATE: 20141210
